FAERS Safety Report 9788419 (Version 1)
Quarter: 2013Q4

REPORT INFORMATION
  Report Type: Report from Study
  Country: MX (occurrence: MX)
  Receive Date: 20131230
  Receipt Date: 20131230
  Transmission Date: 20140711
  Serious: Yes (Other)
  Sender: FDA-Public Use
  Company Number: PHHY2013MX152644

PATIENT
  Age: 65 Year
  Sex: Female

DRUGS (4)
  1. ONBREZ [Suspect]
     Indication: EMPHYSEMA
     Dosage: 150 UG, DAILY
     Route: 055
     Dates: start: 201307, end: 201310
  2. ONBREZ [Suspect]
     Indication: OFF LABEL USE
     Dosage: HALF CAPSULE OF 300 UG, DAILY
     Route: 055
     Dates: start: 201310
  3. MIFLONIDE [Suspect]
     Indication: EMPHYSEMA
     Dosage: 200 MG, DAILY
     Route: 055
     Dates: start: 201207
  4. MIFLONIDE [Suspect]
     Indication: OFF LABEL USE

REACTIONS (2)
  - Hypertension [Not Recovered/Not Resolved]
  - Wrong technique in drug usage process [Not Recovered/Not Resolved]
